FAERS Safety Report 8255393-4 (Version None)
Quarter: 2012Q2

REPORT INFORMATION
  Report Type: 
  Country: None (occurrence: None)
  Receive Date: 20120403
  Receipt Date: 20120321
  Transmission Date: 20120825
  Serious: Yes (Other)
  Sender: FDA-Public Use
  Company Number: DE-ASTELLAS-2012EU001631

PATIENT
  Sex: Female

DRUGS (6)
  1. VESICARE [Suspect]
     Indication: BLADDER DISORDER
     Dosage: 5 MG, UNKNOWN/D
     Route: 065
  2. BISOPROLOL FUMARATE [Concomitant]
     Dosage: UNK
     Route: 065
  3. SIMVASTATIN [Concomitant]
     Dosage: UNK
     Route: 065
  4. VESICARE [Suspect]
     Indication: HYPERTONIC BLADDER
     Dosage: 10 MG, UID/QD
     Route: 048
  5. OLMESARTAN MEDOXOMIL [Concomitant]
     Dosage: UNK
     Route: 065
  6. ASPIRIN [Concomitant]
     Dosage: UNK
     Route: 065

REACTIONS (5)
  - CONSTIPATION [None]
  - HELICOBACTER INFECTION [None]
  - DRY MOUTH [None]
  - CHEST DISCOMFORT [None]
  - DYSPEPSIA [None]
